FAERS Safety Report 8026565 (Version 2)
Quarter: 2012Q4

REPORT INFORMATION
  Report Type: 
  Country: US (occurrence: US)
  Receive Date: 20110708
  Receipt Date: 20121029
  Transmission Date: 20130627
  Serious: Yes (Other)
  Sender: FDA-Public Use
  Company Number: US-ROCHE-787475

PATIENT
  Sex: Female

DRUGS (1)
  1. ACCUTANE [Suspect]
     Indication: PRODUCT USED FOR UNKNOWN INDICATION
     Route: 065
     Dates: start: 2008, end: 2009

REACTIONS (11)
  - Injury [Unknown]
  - Colitis ulcerative [Unknown]
  - Liver injury [Unknown]
  - Visual impairment [Unknown]
  - Cyst [Unknown]
  - Rectal polyp [Unknown]
  - Perirectal abscess [Unknown]
  - Anal fistula [Unknown]
  - Depression [Unknown]
  - Blood triglycerides increased [Unknown]
  - Blood cholesterol increased [Unknown]
